FAERS Safety Report 25431210 (Version 1)
Quarter: 2025Q2

REPORT INFORMATION
  Report Type: Spontaneous
  Country: FR (occurrence: FR)
  Receive Date: 20250613
  Receipt Date: 20250613
  Transmission Date: 20250716
  Serious: Yes (Other)
  Sender: ELI LILLY AND COMPANY
  Company Number: FR-ELI_LILLY_AND_COMPANY-FR202506006106

PATIENT
  Age: 51 Year
  Sex: Female

DRUGS (12)
  1. GEMZAR [Suspect]
     Active Substance: GEMCITABINE HYDROCHLORIDE
     Indication: Retroperitoneal neoplasm metastatic
     Route: 065
     Dates: start: 20250108
  2. GEMZAR [Suspect]
     Active Substance: GEMCITABINE HYDROCHLORIDE
     Route: 065
     Dates: start: 20250409
  3. DOXORUBICIN [Suspect]
     Active Substance: DOXORUBICIN
     Indication: Retroperitoneal neoplasm metastatic
     Route: 042
     Dates: start: 20200220
  4. DOXORUBICIN [Suspect]
     Active Substance: DOXORUBICIN
     Route: 042
     Dates: start: 20200602
  5. DACARBAZINE [Suspect]
     Active Substance: DACARBAZINE
     Indication: Retroperitoneal neoplasm metastatic
     Route: 065
     Dates: start: 20250220
  6. DACARBAZINE [Suspect]
     Active Substance: DACARBAZINE
     Route: 065
     Dates: start: 20250602
  7. TRABECTEDIN [Concomitant]
     Active Substance: TRABECTEDIN
     Indication: Retroperitoneal neoplasm metastatic
     Route: 065
     Dates: start: 20240405
  8. TRABECTEDIN [Concomitant]
     Active Substance: TRABECTEDIN
     Route: 065
     Dates: start: 20240703, end: 202407
  9. PEGFILGRASTIM [Concomitant]
     Active Substance: PEGFILGRASTIM
     Indication: Retroperitoneal neoplasm metastatic
     Route: 065
     Dates: start: 20240405
  10. PEGFILGRASTIM [Concomitant]
     Active Substance: PEGFILGRASTIM
     Route: 065
     Dates: start: 20240703, end: 202407
  11. DEXAMETHASONE [Concomitant]
     Active Substance: DEXAMETHASONE
     Indication: Retroperitoneal neoplasm metastatic
     Route: 065
     Dates: start: 20240405
  12. DEXAMETHASONE [Concomitant]
     Active Substance: DEXAMETHASONE
     Route: 065
     Dates: start: 20240703, end: 202407

REACTIONS (2)
  - Ventricular dysfunction [Not Recovered/Not Resolved]
  - Off label use [Unknown]

NARRATIVE: CASE EVENT DATE: 20250516
